FAERS Safety Report 8649469 (Version 3)
Quarter: 2012Q4

REPORT INFORMATION
  Report Type: 
  Country: JP (occurrence: JP)
  Receive Date: 20120705
  Receipt Date: 20121003
  Transmission Date: 20130627
  Serious: Yes (Life-Threatening, Hospitalization, Other)
  Sender: FDA-Public Use
  Company Number: JP-JNJFOC-20120614016

PATIENT
  Age: 61 Year
  Sex: Male
  Weight: 51 kg

DRUGS (18)
  1. REMICADE [Suspect]
     Indication: BEHCET^S SYNDROME
     Route: 042
  2. REMICADE [Suspect]
     Indication: BEHCET^S SYNDROME
     Route: 042
     Dates: start: 20080124
  3. REMICADE [Suspect]
     Indication: BEHCET^S SYNDROME
     Route: 042
     Dates: start: 20071126
  4. REMICADE [Suspect]
     Indication: BEHCET^S SYNDROME
     Route: 042
     Dates: start: 20071001
  5. REMICADE [Suspect]
     Indication: BEHCET^S SYNDROME
     Route: 042
     Dates: start: 20070905
  6. REMICADE [Suspect]
     Indication: BEHCET^S SYNDROME
     Route: 042
     Dates: start: 20070820
  7. PREDONINE [Suspect]
     Indication: BEHCET^S SYNDROME
     Route: 048
  8. PREDONINE [Suspect]
     Indication: BEHCET^S SYNDROME
     Route: 048
  9. NEORAL [Suspect]
     Indication: BEHCET^S SYNDROME
     Dosage: 50 mg
     Route: 048
  10. COLCHICINE [Concomitant]
     Indication: BEHCET^S SYNDROME
     Route: 048
  11. PARIET [Concomitant]
     Indication: GASTROOESOPHAGEAL REFLUX DISEASE
     Route: 048
  12. ALFAROL [Concomitant]
     Indication: OSTEOPOROSIS
     Route: 048
  13. BAYASPIRIN [Concomitant]
     Indication: BEHCET^S SYNDROME
     Route: 048
  14. MAGLAX [Concomitant]
     Indication: CONSTIPATION
     Route: 048
  15. MAGLAX [Concomitant]
     Indication: CONSTIPATION
     Route: 048
  16. METHYCOBAL [Concomitant]
     Indication: HYPOAESTHESIA
     Route: 048
  17. METHYCOBAL [Concomitant]
     Indication: HYPOAESTHESIA
     Route: 048
  18. SANDIMMUN [Concomitant]
     Route: 048

REACTIONS (5)
  - Lymphoma [Recovering/Resolving]
  - Herpes zoster [Recovering/Resolving]
  - Cellulitis [Recovering/Resolving]
  - Herpes zoster [Unknown]
  - Decubitus ulcer [Recovering/Resolving]
